FAERS Safety Report 7725394-0 (Version None)
Quarter: 2011Q3

REPORT INFORMATION
  Report Type: 
  Country: None (occurrence: None)
  Receive Date: 20110902
  Receipt Date: 20110830
  Transmission Date: 20111222
  Serious: Yes (Other)
  Sender: FDA-Public Use
  Company Number: US-PFIZER INC-2010147062

PATIENT
  Sex: Female
  Weight: 86.168 kg

DRUGS (20)
  1. CHANTIX [Suspect]
     Indication: SMOKING CESSATION THERAPY
     Dosage: 0.5 MG, DAILY
     Route: 048
     Dates: start: 20101103, end: 20101101
  2. LAMOTRIGINE [Concomitant]
     Indication: DEPRESSION
     Dosage: 100 MG, 2X/DAY
     Route: 048
  3. LOPID [Concomitant]
     Dosage: UNK
  4. HYDROCHLOROTHIAZIDE [Concomitant]
     Indication: FLUID RETENTION
     Dosage: 25 MG, 1X/DAY
     Route: 048
  5. ATENOLOL [Concomitant]
     Indication: HEART RATE INCREASED
  6. DEXILANT [Concomitant]
     Indication: OESOPHAGITIS
     Dosage: 600 MG, 1X/DAY
     Route: 048
  7. CHANTIX [Suspect]
     Dosage: 1 MG, 2X/DAY
     Route: 048
     Dates: start: 20101101, end: 20101112
  8. LOPID [Concomitant]
     Indication: BLOOD TRIGLYCERIDES INCREASED
     Dosage: 600 MG, 2X/DAY
     Route: 048
  9. ATENOLOL [Concomitant]
     Indication: HYPERTENSION
     Dosage: 25 MG, 1X/DAY
     Route: 048
  10. KLONOPIN [Concomitant]
     Indication: PANIC ATTACK
     Dosage: 0.5 MG, 2X/DAY
     Route: 048
  11. METFORMIN [Concomitant]
     Dosage: UNK
  12. HYDROCHLOROTHIAZIDE [Concomitant]
     Indication: HYPERTENSION
  13. ABILIFY [Concomitant]
     Indication: BIPOLAR DISORDER
     Dosage: 15 MG, 1X/DAY
     Route: 048
  14. CHANTIX [Suspect]
     Dosage: 1 MG, 2X/DAY
     Route: 048
     Dates: start: 20110625
  15. BENADRYL [Concomitant]
     Dosage: 25 MG, ONE TABLET AT NIGHT
  16. METFORMIN [Concomitant]
     Indication: DIABETES MELLITUS
     Dosage: 500 MG, 2X/DAY
     Route: 048
  17. RISPERIDONE [Concomitant]
     Indication: BIPOLAR DISORDER
     Dosage: 2 MG, ONE AT NIGHT
     Route: 048
  18. FLEXERIL [Concomitant]
     Dosage: 10 MG, TWICE A DAY AS NEEDED
  19. LAMOTRIGINE [Concomitant]
     Indication: BIPOLAR DISORDER
     Dosage: UNK
  20. VISTARIL [Concomitant]
     Indication: INSOMNIA
     Dosage: 100 MG, AT NIGHT

REACTIONS (7)
  - PRURITUS GENERALISED [None]
  - URTICARIA [None]
  - AGITATION [None]
  - FEELING ABNORMAL [None]
  - MOOD ALTERED [None]
  - PANIC ATTACK [None]
  - NAUSEA [None]
